FAERS Safety Report 6400444-2 (Version None)
Quarter: 2009Q4

REPORT INFORMATION
  Report Type: 
  Country: None (occurrence: None)
  Receive Date: 20091014
  Receipt Date: 20091001
  Transmission Date: 20100525
  Serious: Yes (Hospitalization)
  Sender: FDA-Public Use
  Company Number: US-ELI_LILLY_AND_COMPANY-US200909004473

PATIENT
  Sex: Female

DRUGS (13)
  1. FORTEO [Suspect]
     Indication: OSTEOPOROSIS
     Dates: start: 20060101, end: 20070101
  2. PREDNISONE TAB [Concomitant]
     Dosage: 5 MG, DAILY (1/D)
  3. POTASSIUM CHLORIDE [Concomitant]
     Dosage: 10 MEQ, DAILY (1/D)
  4. ASPIRIN [Concomitant]
     Dosage: 81 MG, DAILY (1/D)
  5. MULTI-VITAMIN [Concomitant]
  6. HYDROCODONE [Concomitant]
     Dosage: UNK, 3/D
  7. DUONEB [Concomitant]
     Dosage: UNK, DAILY (1/D)
  8. ADVAIR DISKUS 100/50 [Concomitant]
     Dosage: UNK, 2/D
  9. FOLIC ACID [Concomitant]
     Dosage: 1 MG, DAILY (1/D)
  10. FISH OIL [Concomitant]
     Dosage: UNK, DAILY (1/D)
  11. HUMIRA [Concomitant]
  12. METHOTREXATE SODIUM [Concomitant]
     Dosage: UNK, WEEKLY (1/W)
  13. ULTRAM ER [Concomitant]
     Dosage: 100 MG, DAILY (1/D)

REACTIONS (2)
  - LOBAR PNEUMONIA [None]
  - TENDON RUPTURE [None]
